FAERS Safety Report 24715744 (Version 2)
Quarter: 2025Q1

REPORT INFORMATION
  Report Type: Spontaneous
  Country: CA (occurrence: CA)
  Receive Date: 20241210
  Receipt Date: 20250124
  Transmission Date: 20250409
  Serious: Yes (Other)
  Sender: MACLEODS
  Company Number: CA-MLMSERVICE-20241125-PI268737-00281-1

PATIENT

DRUGS (7)
  1. REPAGLINIDE [Suspect]
     Active Substance: REPAGLINIDE
     Indication: Cystic fibrosis related diabetes
     Route: 065
     Dates: start: 202304, end: 2023
  2. REPAGLINIDE [Suspect]
     Active Substance: REPAGLINIDE
     Dosage: MAXIMUM DOSE.
     Route: 065
     Dates: start: 20230428, end: 202305
  3. REPAGLINIDE [Suspect]
     Active Substance: REPAGLINIDE
     Route: 065
     Dates: start: 2021, end: 20230413
  4. REPAGLINIDE [Suspect]
     Active Substance: REPAGLINIDE
     Route: 065
     Dates: start: 20230413, end: 20230421
  5. REPAGLINIDE [Suspect]
     Active Substance: REPAGLINIDE
     Dosage: TDD OF REPAGLINIDE WAS INCREASED TO 12 MG A DAY
     Route: 065
     Dates: start: 20230421, end: 20230428
  6. ELEXACAFTOR\IVACAFTOR\TEZACAFTOR [Suspect]
     Active Substance: ELEXACAFTOR\IVACAFTOR\TEZACAFTOR
     Indication: Pulmonary function test decreased
     Dosage: 1 TRIPLE PILL DAILY DUE TO PATIENT PREFERENCE
     Route: 065
     Dates: start: 202212, end: 202302
  7. ELEXACAFTOR\IVACAFTOR\TEZACAFTOR [Suspect]
     Active Substance: ELEXACAFTOR\IVACAFTOR\TEZACAFTOR
     Dosage: INCREASED TO 2 PILLS DAILY
     Route: 065
     Dates: start: 202302, end: 20230428

REACTIONS (2)
  - Hypertransaminasaemia [Recovered/Resolved]
  - Drug interaction [Recovered/Resolved]

NARRATIVE: CASE EVENT DATE: 20230101
